FAERS Safety Report 5767378-8 (Version None)
Quarter: 2008Q2

REPORT INFORMATION
  Report Type: 
  Country: None (occurrence: None)
  Receive Date: 20080612
  Receipt Date: 20080602
  Transmission Date: 20081010
  Serious: Yes (Life-Threatening, Hospitalization, Other)
  Sender: FDA-Public Use
  Company Number: B0515113A

PATIENT
  Age: 76 Year
  Sex: Male
  Weight: 62 kg

DRUGS (5)
  1. ARIXTRA [Suspect]
     Dosage: 2.5MG PER DAY
     Route: 058
     Dates: start: 20080307, end: 20080310
  2. UMULINE [Concomitant]
     Route: 042
     Dates: start: 20080303, end: 20080314
  3. NEXIUM [Concomitant]
     Indication: PROPHYLAXIS
     Dosage: 40MG PER DAY
     Route: 042
     Dates: start: 20080303, end: 20080314
  4. LASILIX [Concomitant]
     Indication: OLIGURIA
     Dosage: 10MG AS REQUIRED
     Route: 042
     Dates: start: 20080303, end: 20080314
  5. DOBUTREX [Concomitant]
     Route: 042
     Dates: start: 20080303, end: 20080312

REACTIONS (3)
  - ACTIVATED PARTIAL THROMBOPLASTIN TIME PROLONGED [None]
  - BRONCHIAL OBSTRUCTION [None]
  - HAEMOPTYSIS [None]
